FAERS Safety Report 7360099-X (Version None)
Quarter: 2011Q1

REPORT INFORMATION
  Report Type: 
  Country: None (occurrence: None)
  Receive Date: 20110318
  Receipt Date: 20110307
  Transmission Date: 20110831
  Serious: Yes (Other)
  Sender: FDA-Public Use
  Company Number: GB-BIOGENIDEC-2011BI006021

PATIENT

DRUGS (1)
  1. TYSABRI [Suspect]
     Route: 064
     Dates: start: 20090309, end: 20091001

REACTIONS (1)
  - SCAN ABNORMAL [None]
